FAERS Safety Report 5071392-8 (Version None)
Quarter: 2006Q3

REPORT INFORMATION
  Report Type: 
  Country: None (occurrence: None)
  Receive Date: 20060804
  Receipt Date: 20060316
  Transmission Date: 20061208
  Serious: No
  Sender: FDA-Public Use
  Company Number: US-AMGEN-US172658

PATIENT
  Sex: Male

DRUGS (19)
  1. ARANESP [Suspect]
     Indication: ANAEMIA
     Dates: start: 20060124
  2. NOVOLIN 70/30 [Concomitant]
  3. STARLIX [Concomitant]
  4. METFORMIN [Concomitant]
  5. COZAAR [Concomitant]
  6. LEVOXYL [Concomitant]
  7. VITAMIN D [Concomitant]
  8. OSCAL [Concomitant]
  9. TESTOSTERONE [Concomitant]
  10. EZETIMIBE [Concomitant]
  11. FISH OIL [Concomitant]
  12. INDOMETHACIN [Concomitant]
  13. NEXIUM [Concomitant]
  14. VIAGRA [Concomitant]
  15. FOLIC ACID [Concomitant]
  16. COENZYME Q10 [Concomitant]
  17. ASPIRIN [Concomitant]
  18. ASCORBIC ACID [Concomitant]
  19. COLACE [Concomitant]

REACTIONS (1)
  - THERAPEUTIC RESPONSE DECREASED [None]
